FAERS Safety Report 4374268-4 (Version None)
Quarter: 2004Q2

REPORT INFORMATION
  Report Type: 
  Country: None (occurrence: None)
  Receive Date: 20040608
  Receipt Date: 20040608
  Transmission Date: 20050107
  Serious: Yes (Other)
  Sender: FDA-Public Use
  Company Number: None

PATIENT
  Age: 27 Year
  Sex: Male
  Weight: 117.9352 kg

DRUGS (8)
  1. ZYPREXA [Suspect]
     Indication: ANXIETY
     Dosage: 15 MG QHS PO
     Route: 048
  2. ZYPREXA [Suspect]
     Indication: BIPOLAR DISORDER
     Dosage: 15 MG QHS PO
     Route: 048
  3. ZYPREXA [Suspect]
     Indication: DEPRESSION
     Dosage: 15 MG QHS PO
     Route: 048
  4. GEMFIBROZIL [Suspect]
     Indication: HYPERTRIGLYCERIDAEMIA
     Dosage: 600 MG BID
     Dates: start: 20030923, end: 20040507
  5. ZOLOFT [Concomitant]
  6. KLONOPIN [Concomitant]
  7. METOPROLOL TARTRATE [Concomitant]
  8. HYDROCHLOROTHIAZIDE [Concomitant]

REACTIONS (2)
  - ALANINE AMINOTRANSFERASE INCREASED [None]
  - LIVER FUNCTION TEST ABNORMAL [None]
